FAERS Safety Report 7587183-X (Version None)
Quarter: 2011Q3

REPORT INFORMATION
  Report Type: 
  Country: None (occurrence: None)
  Receive Date: 20110701
  Receipt Date: 20110624
  Transmission Date: 20111222
  Serious: Yes (Hospitalization)
  Sender: FDA-Public Use
  Company Number: JP-ABBOTT-10P-087-0676354-00

PATIENT
  Sex: Male
  Weight: 67.5 kg

DRUGS (6)
  1. MAXACALCITOL [Concomitant]
     Indication: PSORIASIS
     Dosage: Q.S.
     Route: 061
  2. PREDNISOLONE ACETATE [Concomitant]
     Indication: PSORIASIS
     Dosage: QS
     Dates: start: 20101102
  3. HUMIRA [Suspect]
     Indication: PSORIASIS
     Route: 058
     Dates: start: 20100929, end: 20100929
  4. HUMIRA [Suspect]
     Dates: start: 20101013, end: 20101117
  5. HUMIRA [Suspect]
     Dates: start: 20101201
  6. EPINASTINE HYDROCHLORIDE [Concomitant]
     Indication: PSORIASIS
     Route: 048
     Dates: end: 20100930

REACTIONS (2)
  - ANGINA PECTORIS [None]
  - ACNE [None]
